FAERS Safety Report 11569422 (Version 1)
Quarter: 2015Q3

REPORT INFORMATION
  Report Type: Spontaneous
  Country: FR (occurrence: FR)
  Receive Date: 20150929
  Receipt Date: 20150929
  Transmission Date: 20151125
  Serious: Yes (Hospitalization)
  Sender: FDA-Public Use
  Company Number: FR-ASTRAZENECA-2015SE93239

PATIENT
  Age: 48 Year
  Sex: Female

DRUGS (4)
  1. PYLERA [Suspect]
     Active Substance: BISMUTH SUBCITRATE POTASSIUM\METRONIDAZOLE\TETRACYCLINE HYDROCHLORIDE
     Indication: HELICOBACTER INFECTION
     Dosage: 140 MG OF BISMUTH+ 125 MG OF METRONIDAZOL+125 MG OF TETRACYCLIN, DAILY
     Route: 048
     Dates: start: 201404
  2. MOPRAL [Suspect]
     Active Substance: OMEPRAZOLE SODIUM
     Route: 048
  3. NASONEX [Concomitant]
     Active Substance: MOMETASONE FUROATE
  4. KESTIN [Concomitant]
     Active Substance: EBASTINE

REACTIONS (2)
  - Helicobacter infection [Unknown]
  - Feeling hot [Not Recovered/Not Resolved]

NARRATIVE: CASE EVENT DATE: 201404
